FAERS Safety Report 18348821 (Version 1)
Quarter: 2020Q4

REPORT INFORMATION
  Report Type: Spontaneous
  Country: AT (occurrence: AT)
  Receive Date: 20201006
  Receipt Date: 20201006
  Transmission Date: 20210114
  Serious: Yes (Other)
  Sender: FDA-Public Use
  Company Number: AT-TEVA-2020-AT-1834674

PATIENT
  Age: 54 Year
  Sex: Female

DRUGS (4)
  1. CIPROFLOXACIN RATIOPHARM 250 MG - FILMTABLETTEN [Suspect]
     Active Substance: CIPROFLOXACIN HYDROCHLORIDE
     Dates: start: 20200713, end: 20200713
  2. RESPICUR RETARD 100 MG [Concomitant]
  3. ELIQUIS 5 MG FILMTABLETTEN [Concomitant]
  4. ZURCAL 20 MG - FILMTABLETTEN [Concomitant]

REACTIONS (3)
  - Type I hypersensitivity [Recovered/Resolved]
  - Pruritus [Recovered/Resolved]
  - Rash [Recovered/Resolved]

NARRATIVE: CASE EVENT DATE: 20200713
